FAERS Safety Report 10566966 (Version 3)
Quarter: 2016Q1

REPORT INFORMATION
  Report Type: Spontaneous
  Country: MX (occurrence: MX)
  Receive Date: 20141105
  Receipt Date: 20160125
  Transmission Date: 20160525
  Serious: Yes (Hospitalization, Disabling)
  Sender: FDA-Public Use
  Company Number: MX-ROCHE-1375867

PATIENT
  Sex: Female
  Weight: 68 kg

DRUGS (8)
  1. KADCYLA [Suspect]
     Active Substance: ADO-TRASTUZUMAB EMTANSINE
     Indication: BREAST CANCER METASTATIC
     Route: 065
     Dates: start: 201408
  2. XELODA [Suspect]
     Active Substance: CAPECITABINE
     Dosage: DURING 15 DAYS OF TREATMENT AND 8 DAYS TO REST
     Route: 048
     Dates: start: 2012, end: 2012
  3. HERCEPTIN [Suspect]
     Active Substance: TRASTUZUMAB
     Indication: BREAST CANCER METASTATIC
     Route: 042
     Dates: start: 201301
  4. XGEVA [Suspect]
     Active Substance: DENOSUMAB
     Indication: BREAST CANCER METASTATIC
     Route: 042
     Dates: start: 201307
  5. PERJETA [Suspect]
     Active Substance: PERTUZUMAB
     Indication: BREAST CANCER METASTATIC
     Route: 042
     Dates: start: 201402, end: 201408
  6. HERCEPTIN [Suspect]
     Active Substance: TRASTUZUMAB
     Route: 042
     Dates: start: 200901
  7. ZOMETA [Concomitant]
     Active Substance: ZOLEDRONIC ACID
     Indication: BREAST CANCER METASTATIC
     Route: 065
     Dates: start: 2012
  8. XELODA [Suspect]
     Active Substance: CAPECITABINE
     Indication: BREAST CANCER METASTATIC
     Dosage: DURING 15 DAYS OF THERAPY AND 8 DAYS TO REST
     Route: 048
     Dates: start: 2012, end: 201305

REACTIONS (23)
  - Neuropathy peripheral [Recovered/Resolved]
  - Gastric disorder [Recovered/Resolved]
  - Diarrhoea [Recovered/Resolved]
  - Dehydration [Recovered/Resolved]
  - Asthenia [Recovered/Resolved]
  - Abdominal pain upper [Recovered/Resolved]
  - Malaise [Not Recovered/Not Resolved]
  - Headache [Recovered/Resolved]
  - Abdominal discomfort [Recovered/Resolved]
  - Fatigue [Recovered/Resolved]
  - Dizziness [Recovered/Resolved]
  - Nausea [Recovered/Resolved]
  - Alopecia [Recovered/Resolved]
  - Dysgeusia [Recovered/Resolved]
  - Somnolence [Recovered/Resolved]
  - Fall [Unknown]
  - Insomnia [Recovered/Resolved]
  - Vomiting [Recovered/Resolved]
  - Decreased appetite [Recovered/Resolved]
  - Vision blurred [Recovered/Resolved]
  - Femur fracture [Not Recovered/Not Resolved]
  - Palmar-plantar erythrodysaesthesia syndrome [Recovered/Resolved]
  - Gastritis [Not Recovered/Not Resolved]

NARRATIVE: CASE EVENT DATE: 2012
